FAERS Safety Report 20379249 (Version 1)
Quarter: 2022Q1

REPORT INFORMATION
  Report Type: Spontaneous
  Country: IN (occurrence: IN)
  Receive Date: 20220126
  Receipt Date: 20220126
  Transmission Date: 20220423
  Serious: Yes (Death, Other)
  Sender: FDA-Public Use
  Company Number: IN-BAYER-2022A011905

PATIENT
  Age: 65 Year
  Sex: Female

DRUGS (1)
  1. SORAFENIB [Suspect]
     Active Substance: SORAFENIB
     Indication: Rhabdoid tumour of the kidney
     Dosage: 400 MG, BID

REACTIONS (4)
  - Rhabdoid tumour of the kidney [Fatal]
  - Metastases to spleen [None]
  - Metastases to pancreas [None]
  - Off label use [None]
